FAERS Safety Report 26172856 (Version 1)
Quarter: 2025Q4

REPORT INFORMATION
  Report Type: Spontaneous
  Country: US (occurrence: US)
  Receive Date: 20251218
  Receipt Date: 20251218
  Transmission Date: 20260118
  Serious: Yes (Death)
  Sender: GE HEALTHCARE
  Company Number: US-GE HEALTHCARE-2025CSU017994

PATIENT
  Sex: Male

DRUGS (1)
  1. VIZAMYL [Suspect]
     Active Substance: FLUTEMETAMOL F-18
     Indication: Positron emission tomogram
     Dosage: UNK, TOTAL
     Route: 065

REACTIONS (1)
  - Death [Fatal]
